FAERS Safety Report 4661895-X (Version None)
Quarter: 2005Q2

REPORT INFORMATION
  Report Type: 
  Country: None (occurrence: None)
  Receive Date: 20050513
  Receipt Date: 20030703
  Transmission Date: 20051028
  Serious: Yes (Hospitalization, Disabling, Other)
  Sender: FDA-Public Use
  Company Number: US-MERCK-0307USA00400

PATIENT
  Age: 62 Year
  Sex: Female

DRUGS (17)
  1. VIOXX [Suspect]
     Indication: ARTHROPATHY
     Route: 048
     Dates: start: 19990601, end: 20010101
  2. VIOXX [Suspect]
     Route: 048
     Dates: start: 20010121
  3. VIOXX [Suspect]
     Route: 048
     Dates: start: 20010101, end: 20010701
  4. VIOXX [Suspect]
     Indication: PAIN
     Route: 048
     Dates: start: 19990601, end: 20010101
  5. VIOXX [Suspect]
     Route: 048
     Dates: start: 20010121
  6. VIOXX [Suspect]
     Route: 048
     Dates: start: 20010101, end: 20010701
  7. LIPITOR [Concomitant]
     Indication: BLOOD CHOLESTEROL INCREASED
     Route: 065
     Dates: start: 19970101
  8. LOPRESSOR [Concomitant]
     Indication: HYPERTENSION
     Route: 065
     Dates: start: 19970101
  9. DYAZIDE [Concomitant]
     Route: 065
  10. PRILOSEC [Concomitant]
     Route: 065
  11. DURAGESIC-100 [Concomitant]
     Indication: ARTHRALGIA
     Route: 061
  12. VOLTAREN [Concomitant]
     Route: 065
  13. ZOLOFT [Concomitant]
     Route: 065
     Dates: start: 19980101
  14. CELEBREX [Concomitant]
     Route: 065
     Dates: start: 19990101, end: 20010601
  15. TRIAMTERENE [Concomitant]
     Route: 065
  16. DENAVIR [Concomitant]
     Route: 065
  17. METOPROLOL [Concomitant]
     Route: 065
     Dates: start: 19980101

REACTIONS (16)
  - ANAEMIA [None]
  - ANAEMIA OF CHRONIC DISEASE [None]
  - ANGIODYSPLASIA [None]
  - BRONCHITIS [None]
  - CERVICOBRACHIAL SYNDROME [None]
  - DEPRESSION [None]
  - DIVERTICULAR PERFORATION [None]
  - DYSPNOEA [None]
  - GASTRITIS [None]
  - GASTROINTESTINAL HAEMORRHAGE [None]
  - GASTROOESOPHAGEAL REFLUX DISEASE [None]
  - MUSCLE SPASMS [None]
  - OSTEOARTHRITIS [None]
  - POLYP COLORECTAL [None]
  - RECTAL HAEMORRHAGE [None]
  - SMALL INTESTINAL HAEMORRHAGE [None]
